FAERS Safety Report 7897277-7 (Version None)
Quarter: 2011Q4

REPORT INFORMATION
  Report Type: 
  Country: None (occurrence: None)
  Receive Date: 20111107
  Receipt Date: 20111024
  Transmission Date: 20120403
  Serious: Yes (Hospitalization)
  Sender: FDA-Public Use
  Company Number: PHHY2011FR94719

PATIENT
  Sex: Female
  Weight: 100 kg

DRUGS (11)
  1. LASIX [Concomitant]
     Dosage: UNK UKN, UNK
  2. TASIGNA [Suspect]
     Indication: CHRONIC MYELOID LEUKAEMIA
     Dosage: UNK UKN, UNK
     Route: 048
     Dates: start: 20110101
  3. OXYGEN THERAPY [Concomitant]
  4. ALDACTONE [Concomitant]
     Dosage: UNK UKN, UNK
  5. HYPERIUM [Concomitant]
     Dosage: UNK UKN, UNK
  6. METFORMIN HCL [Concomitant]
  7. LEVOTHYROXINE SODIUM [Concomitant]
  8. RENITEC                                 /NET/ [Concomitant]
     Dosage: UNK UKN, UNK
  9. NOVORAPID [Concomitant]
     Dosage: UNK UKN, UNK
  10. DASATINIB [Suspect]
     Indication: CHRONIC MYELOID LEUKAEMIA
     Dosage: UNK UKN, UNK
  11. NOVOLOG MIX 70/30 [Concomitant]
     Dosage: UNK UKN, UNK

REACTIONS (7)
  - PULMONARY ARTERY DILATATION [None]
  - DYSPNOEA [None]
  - CARDIAC MURMUR [None]
  - PULMONARY HYPERTENSION [None]
  - RIGHT VENTRICULAR FAILURE [None]
  - OEDEMA PERIPHERAL [None]
  - PALPITATIONS [None]
